FAERS Safety Report 9789889 (Version 1)
Quarter: 2013Q4

REPORT INFORMATION
  Report Type: Spontaneous
  Country: US (occurrence: US)
  Receive Date: 20131231
  Receipt Date: 20131231
  Transmission Date: 20140711
  Serious: No
  Sender: FDA-Public Use
  Company Number: US-B.I. PHARMACEUTICALS,INC./RIDGEFIELD-2013-BI-43132BP

PATIENT
  Sex: Female

DRUGS (11)
  1. MOBIC [Suspect]
  2. PRILOSEC [Concomitant]
  3. ZESTRIL [Concomitant]
  4. PRAVASTATIN [Concomitant]
  5. SAVELRA [Concomitant]
  6. FISH OIL [Concomitant]
  7. MVI [Concomitant]
  8. TYLENOL PM [Concomitant]
  9. PERCOCET [Concomitant]
  10. LYRICA [Concomitant]
     Route: 048
  11. VITAMIN D [Concomitant]

REACTIONS (3)
  - Drug hypersensitivity [Unknown]
  - Asthma [Unknown]
  - Dyspnoea [Unknown]
